FAERS Safety Report 15537352 (Version 1)
Quarter: 2018Q4

REPORT INFORMATION
  Report Type: Spontaneous
  Country: FR (occurrence: FR)
  Receive Date: 20181022
  Receipt Date: 20181022
  Transmission Date: 20190205
  Serious: Yes (Other)
  Sender: FDA-Public Use
  Company Number: PHHY2018FR130767

PATIENT
  Age: 45 Year
  Sex: Female

DRUGS (1)
  1. ZOLEDRONIC ACID [Suspect]
     Active Substance: ZOLEDRONIC ACID
     Indication: METASTASES TO BONE
     Dosage: 4 MG, (1 TOTAL)
     Route: 042
     Dates: start: 20181001, end: 20181001

REACTIONS (4)
  - Palpitations [Recovered/Resolved]
  - Injection site reaction [Recovered/Resolved]
  - Myalgia [Recovering/Resolving]
  - Burning sensation [Recovered/Resolved]

NARRATIVE: CASE EVENT DATE: 20181001
